FAERS Safety Report 25584580 (Version 1)
Quarter: 2025Q3

REPORT INFORMATION
  Report Type: Spontaneous
  Country: US (occurrence: US)
  Receive Date: 20250721
  Receipt Date: 20250721
  Transmission Date: 20251020
  Serious: No
  Sender: AMGEN
  Company Number: US-AMGEN-USASP2025140797

PATIENT
  Age: 53 Year
  Sex: Female

DRUGS (4)
  1. OTEZLA [Suspect]
     Active Substance: APREMILAST
     Indication: Psoriatic arthropathy
     Dosage: 30 MILLIGRAM, BID
     Route: 048
  2. ONDANSETRON HYDROCHLORIDE [Concomitant]
     Active Substance: ONDANSETRON HYDROCHLORIDE
  3. ALBUTEROL [Concomitant]
     Active Substance: ALBUTEROL
  4. CELEBREX [Concomitant]
     Active Substance: CELECOXIB

REACTIONS (4)
  - Gastrointestinal disorder [Unknown]
  - Nausea [Unknown]
  - Abdominal discomfort [Unknown]
  - Product dose omission issue [Unknown]
